FAERS Safety Report 9717021 (Version 1)
Quarter: 2013Q4

REPORT INFORMATION
  Report Type: Spontaneous
  Country: US (occurrence: US)
  Receive Date: 20131127
  Receipt Date: 20131127
  Transmission Date: 20140711
  Serious: No
  Sender: FDA-Public Use
  Company Number: US-GILEAD-2009-0020380

PATIENT
  Age: 43 Year
  Sex: Male
  Weight: 74.84 kg

DRUGS (3)
  1. LETAIRIS [Suspect]
     Indication: PULMONARY ARTERIAL HYPERTENSION
     Route: 048
     Dates: start: 20080819
  2. REVATIO [Concomitant]
     Indication: PULMONARY ARTERIAL HYPERTENSION
  3. DIGOXIN [Concomitant]

REACTIONS (3)
  - Epistaxis [Unknown]
  - Flushing [Unknown]
  - Palpitations [Unknown]
